FAERS Safety Report 8340298-0 (Version None)
Quarter: 2012Q2

REPORT INFORMATION
  Report Type: 
  Country: None (occurrence: None)
  Receive Date: 20120507
  Receipt Date: 20120507
  Transmission Date: 20120825
  Serious: Yes (Life-Threatening, Disabling, Other)
  Sender: FDA-Public Use
  Company Number: None

PATIENT
  Sex: Male
  Weight: 83.914 kg

DRUGS (2)
  1. GEODON [Suspect]
     Indication: ANXIETY
     Dosage: |DOSAGETEXT: VARIED FROM 20MG TO 60MG DAILY||STRENGTH: RANGE OF 20 TO 60MG DOSAGES DAILY||FREQ: QD||
     Route: 048
     Dates: start: 20060915, end: 20110107
  2. GEODON [Suspect]
     Indication: DEPRESSION
     Dosage: |DOSAGETEXT: VARIED FROM 20MG TO 60MG DAILY||STRENGTH: RANGE OF 20 TO 60MG DOSAGES DAILY||FREQ: QD||
     Route: 048
     Dates: start: 20060915, end: 20110107

REACTIONS (15)
  - TARDIVE DYSKINESIA [None]
  - DRUG WITHDRAWAL SYNDROME [None]
  - FATIGUE [None]
  - DYSTONIA [None]
  - MALAISE [None]
  - SOMNOLENCE [None]
  - HYPERSOMNIA [None]
  - RESTLESS LEGS SYNDROME [None]
  - RASH GENERALISED [None]
  - DEPRESSED LEVEL OF CONSCIOUSNESS [None]
  - NEUROLEPTIC MALIGNANT SYNDROME [None]
  - INFLUENZA LIKE ILLNESS [None]
  - ROAD TRAFFIC ACCIDENT [None]
  - CONFUSIONAL STATE [None]
  - IMPAIRED WORK ABILITY [None]
